FAERS Safety Report 14949518 (Version 2)
Quarter: 2018Q2

REPORT INFORMATION
  Report Type: Report from Study
  Country: CR (occurrence: CR)
  Receive Date: 20180529
  Receipt Date: 20180626
  Transmission Date: 20180711
  Serious: Yes (Other)
  Sender: FDA-Public Use
  Company Number: PHHY2018CR009537

PATIENT
  Age: 81 Year
  Sex: Female

DRUGS (3)
  1. DIOVAN [Suspect]
     Active Substance: VALSARTAN
     Indication: PRODUCT USED FOR UNKNOWN INDICATION
     Dosage: 1 DF, UNK
     Route: 065
  2. DIOVAN [Interacting]
     Active Substance: VALSARTAN
     Dosage: 2 DF, UNK
     Route: 065
  3. DIOVAN [Interacting]
     Active Substance: VALSARTAN
     Dosage: UNK
     Route: 065
     Dates: start: 20180618

REACTIONS (5)
  - Cough [Unknown]
  - Blood pressure increased [Unknown]
  - Drug interaction [Unknown]
  - Wrong technique in product usage process [Unknown]
  - Drug prescribing error [Unknown]
